FAERS Safety Report 24729992 (Version 3)
Quarter: 2025Q1

REPORT INFORMATION
  Report Type: Report from Study
  Country: CO (occurrence: CO)
  Receive Date: 20241213
  Receipt Date: 20250101
  Transmission Date: 20250408
  Serious: Yes (Disabling)
  Sender: BRISTOL-MYERS SQUIBB COMPANY
  Company Number: CO-BRISTOL-MYERS SQUIBB COMPANY-2024-192112

PATIENT
  Age: 74 Year
  Sex: Male
  Weight: 64 kg

DRUGS (1)
  1. OPDIVO [Suspect]
     Active Substance: NIVOLUMAB
     Indication: Gastric cancer
     Dosage: DOSE: 240 MG/ML
     Route: 042
     Dates: start: 20241010, end: 20241201

REACTIONS (7)
  - Tremor [Recovering/Resolving]
  - Arthralgia [Recovering/Resolving]
  - Chills [Recovering/Resolving]
  - Pyrexia [Recovering/Resolving]
  - Off label use [Unknown]
  - Abdominal pain [Unknown]
  - Malaise [Recovering/Resolving]

NARRATIVE: CASE EVENT DATE: 20241201
